FAERS Safety Report 6451325-X (Version None)
Quarter: 2009Q4

REPORT INFORMATION
  Report Type: 
  Country: None (occurrence: None)
  Receive Date: 20091123
  Receipt Date: 20091118
  Transmission Date: 20100525
  Serious: Yes (Hospitalization)
  Sender: FDA-Public Use
  Company Number: CA-MERCK-0911USA03002

PATIENT
  Age: 71 Year
  Sex: Male

DRUGS (22)
  1. DECADRON [Suspect]
     Route: 048
  2. REVLIMID [Suspect]
     Indication: MULTIPLE MYELOMA
     Route: 048
     Dates: start: 20090519, end: 20090801
  3. IMDUR [Concomitant]
     Route: 065
  4. METFORMIN [Concomitant]
     Route: 065
  5. PANTOPRAZOLE [Concomitant]
     Route: 065
  6. DOCUSATE SODIUM [Concomitant]
     Route: 065
  7. HYDROMORPHONE [Concomitant]
     Route: 065
  8. HYDROMORPHONE [Concomitant]
     Route: 065
  9. SENOKOT [Concomitant]
     Route: 065
  10. ASPIRIN [Concomitant]
     Route: 065
  11. COUMADIN [Concomitant]
     Route: 065
  12. APO-DOMPERIDONE [Concomitant]
     Route: 065
  13. LIPITOR [Concomitant]
     Route: 065
  14. METOPROLOL [Concomitant]
     Route: 065
  15. NORVASC [Concomitant]
     Route: 065
  16. FUROSEMIDE [Concomitant]
     Route: 065
  17. RIVA K SR [Concomitant]
     Route: 065
  18. ISMN [Concomitant]
     Route: 065
  19. ARANESP [Concomitant]
     Route: 065
  20. AREDIA [Concomitant]
     Route: 065
  21. NITROSPRAY [Concomitant]
     Route: 065
  22. HUMULIN R [Concomitant]
     Route: 065

REACTIONS (1)
  - BLOOD GLUCOSE FLUCTUATION [None]
